FAERS Safety Report 17634121 (Version 6)
Quarter: 2021Q3

REPORT INFORMATION
  Report Type: Spontaneous
  Country: CA (occurrence: CA)
  Receive Date: 20200406
  Receipt Date: 20210723
  Transmission Date: 20211014
  Serious: Yes (Other)
  Sender: FDA-Public Use
  Company Number: CA-PFIZER INC-2019082183

PATIENT
  Age: 39 Year
  Sex: Female

DRUGS (9)
  1. XELJANZ [Suspect]
     Active Substance: TOFACITINIB CITRATE
     Dosage: 10 MG, 1X/DAY
     Route: 048
     Dates: start: 20190720, end: 20190827
  2. XELJANZ [Suspect]
     Active Substance: TOFACITINIB CITRATE
     Dosage: 10 MG, 2X/DAY
     Route: 048
     Dates: start: 2020
  3. SALOFALK [MESALAZINE] [Concomitant]
     Active Substance: MESALAMINE
     Dosage: UNK
     Dates: start: 2019, end: 201902
  4. CORTIMENT [BUDESONIDE] [Concomitant]
     Active Substance: BUDESONIDE
     Dosage: UNK
     Dates: end: 202003
  5. SALOFALK [MESALAZINE] [Concomitant]
     Active Substance: MESALAMINE
     Dosage: 2 G, DAILY
     Route: 048
     Dates: start: 2019
  6. SALOFALK [MESALAZINE] [Concomitant]
     Active Substance: MESALAMINE
     Dosage: 4 DF, (IN THE MORNING)
     Route: 048
     Dates: start: 2019, end: 2019
  7. XELJANZ [Suspect]
     Active Substance: TOFACITINIB CITRATE
     Indication: COLITIS ULCERATIVE
     Dosage: 10 MG, 2X/DAY
     Route: 048
     Dates: start: 20190215, end: 20190719
  8. XELJANZ [Suspect]
     Active Substance: TOFACITINIB CITRATE
     Dosage: 10 MG, 2X/DAY
     Route: 048
     Dates: start: 20200312, end: 20200603
  9. XELJANZ [Suspect]
     Active Substance: TOFACITINIB CITRATE
     Dosage: 5 MG, 2X/DAY
     Route: 048
     Dates: start: 20190827, end: 20200312

REACTIONS (24)
  - Haematochezia [Unknown]
  - Constipation [Unknown]
  - Vomiting [Recovered/Resolved]
  - Malaise [Unknown]
  - Nausea [Recovered/Resolved]
  - Blood cholesterol increased [Unknown]
  - Gastroenteritis viral [Unknown]
  - Loss of personal independence in daily activities [Unknown]
  - Blood iron decreased [Recovered/Resolved]
  - Proctitis [Unknown]
  - Bowel movement irregularity [Unknown]
  - Colitis [Unknown]
  - Stress [Unknown]
  - Product dose omission issue [Unknown]
  - Subcutaneous abscess [Not Recovered/Not Resolved]
  - Vaginal abscess [Not Recovered/Not Resolved]
  - Decreased appetite [Recovered/Resolved]
  - Faecal calprotectin increased [Unknown]
  - Abdominal pain [Unknown]
  - Headache [Recovered/Resolved]
  - Abdominal distension [Unknown]
  - Weight decreased [Unknown]
  - Condition aggravated [Not Recovered/Not Resolved]
  - Blood triglycerides increased [Unknown]

NARRATIVE: CASE EVENT DATE: 2019
